FAERS Safety Report 7323859-7 (Version None)
Quarter: 2011Q1

REPORT INFORMATION
  Report Type: 
  Country: None (occurrence: None)
  Receive Date: 20110301
  Receipt Date: 20110223
  Transmission Date: 20110831
  Serious: Yes (Hospitalization)
  Sender: FDA-Public Use
  Company Number: A0915083A

PATIENT
  Age: 42 Year
  Sex: Female

DRUGS (6)
  1. REBIF [Concomitant]
  2. LEVOTHYROXINE SODIUM [Concomitant]
  3. REQUIP [Suspect]
     Indication: RESTLESS LEGS SYNDROME
     Dosage: 2MG TWICE PER DAY
     Route: 048
     Dates: start: 20050101
  4. EFFEXOR XR [Concomitant]
  5. ZANAFLEX [Concomitant]
  6. CLONAZEPAM [Concomitant]

REACTIONS (3)
  - INFLUENZA [None]
  - MULTIPLE SCLEROSIS RELAPSE [None]
  - ESCHERICHIA URINARY TRACT INFECTION [None]
